FAERS Safety Report 8458268-0 (Version None)
Quarter: 2012Q2

REPORT INFORMATION
  Report Type: 
  Country: None (occurrence: None)
  Receive Date: 20120615
  Receipt Date: 20120612
  Transmission Date: 20120825
  Serious: Yes (Disabling, Other)
  Sender: FDA-Public Use
  Company Number: PHHY2012JP024436

PATIENT
  Age: 82 Year
  Sex: Male
  Weight: 58 kg

DRUGS (5)
  1. LUCENTIS [Suspect]
     Indication: AGE-RELATED MACULAR DEGENERATION
     Dosage: 0.05 ML INCE EY
     Dates: start: 20091211
  2. AVASTIN [Suspect]
     Indication: AGE-RELATED MACULAR DEGENERATION
     Dates: start: 20100114, end: 20100114
  3. VISUDYNE [Suspect]
     Indication: AGE-RELATED MACULAR DEGENERATION
     Dosage: 4.8 ML ONCE, IV
     Route: 042
     Dates: start: 20091016, end: 20091016
  4. VISUDYNE [Suspect]
     Indication: AGE-RELATED MACULAR DEGENERATION
     Dates: start: 20100122, end: 20100122
  5. AVASTIN [Suspect]
     Indication: AGE-RELATED MACULAR DEGENERATION
     Dosage: 0;05 ML ONCE, EY
     Dates: start: 20091001, end: 20091001

REACTIONS (4)
  - RETINAL HAEMORRHAGE [None]
  - VISUAL ACUITY REDUCED [None]
  - RETINAL PIGMENT EPITHELIAL TEAR [None]
  - CHOROIDAL NEOVASCULARISATION [None]
